FAERS Safety Report 11206407 (Version 1)
Quarter: 2015Q2

REPORT INFORMATION
  Report Type: Spontaneous
  Country: US (occurrence: None)
  Receive Date: 20150618
  Receipt Date: 20150618
  Transmission Date: 20150821
  Serious: Yes (Disabling)
  Sender: FDA-Public Use
  Company Number: None

PATIENT
  Age: 60 Year
  Sex: Male
  Weight: 76.2 kg

DRUGS (14)
  1. MULTIPLE VITAMIN [Concomitant]
     Active Substance: VITAMINS
  2. INVOKANA [Suspect]
     Active Substance: CANAGLIFLOZIN
     Indication: DIABETES MELLITUS
     Dosage: 1 PILL
     Route: 048
     Dates: start: 20141217, end: 20150612
  3. FISH OIL [Concomitant]
     Active Substance: FISH OIL
  4. ALPHA LIPOIC ACID [Concomitant]
     Active Substance: .ALPHA.-LIPOIC ACID
  5. GLUCOSAMINE [Concomitant]
     Active Substance: GLUCOSAMINE
  6. METFORMIN [Concomitant]
     Active Substance: METFORMIN HYDROCHLORIDE
  7. BABY ASPIRIN [Concomitant]
     Active Substance: ASPIRIN
  8. METOPALOL [Concomitant]
  9. JANUMET [Concomitant]
     Active Substance: METFORMIN HYDROCHLORIDE\SITAGLIPTIN PHOSPHATE
  10. LISINOPRIL. [Concomitant]
     Active Substance: LISINOPRIL
  11. CHROMIUM PICOLINATE [Concomitant]
     Active Substance: CHROMIUM PICOLINATE
  12. SYNTHROID [Concomitant]
     Active Substance: LEVOTHYROXINE SODIUM
  13. CRESTOR [Concomitant]
     Active Substance: ROSUVASTATIN CALCIUM
  14. NIACIN ER [Concomitant]
     Active Substance: NIACIN

REACTIONS (5)
  - Muscular weakness [None]
  - Blood test abnormal [None]
  - Glycosylated haemoglobin increased [None]
  - Abdominal pain [None]
  - Ketoacidosis [None]

NARRATIVE: CASE EVENT DATE: 20150612
